FAERS Safety Report 9341264 (Version 1)
Quarter: 2013Q2

REPORT INFORMATION
  Report Type: Spontaneous
  Country: US (occurrence: US)
  Receive Date: 20130611
  Receipt Date: 20130611
  Transmission Date: 20140414
  Serious: Yes (Other)
  Sender: FDA-Public Use
  Company Number: US-ASTRAZENECA-2013SE40372

PATIENT
  Sex: Female

DRUGS (14)
  1. ZESTRIL [Suspect]
     Route: 048
  2. METOPROLOL [Suspect]
     Route: 065
  3. OTHER MEDICATIONS [Suspect]
     Route: 065
  4. METHOTREXATE [Concomitant]
  5. FLEXERIL [Concomitant]
  6. PERCOCET [Concomitant]
  7. LANTUS [Concomitant]
  8. NOVOLOG [Concomitant]
  9. VITAMIN D [Concomitant]
  10. AMITRIPTYLINE [Concomitant]
  11. PLAQUENIL [Concomitant]
  12. PREDNISONE [Concomitant]
  13. LASIX [Concomitant]
  14. POTASSIUM [Concomitant]

REACTIONS (1)
  - Weight increased [Unknown]
